FAERS Safety Report 25981727 (Version 1)
Quarter: 2025Q4

REPORT INFORMATION
  Report Type: Report from Study
  Country: US (occurrence: US)
  Receive Date: 20251031
  Receipt Date: 20251031
  Transmission Date: 20260118
  Serious: Yes (Death)
  Sender: ABBVIE
  Company Number: US-ABBVIE-6526659

PATIENT
  Sex: Male

DRUGS (1)
  1. HUMIRA [Suspect]
     Active Substance: ADALIMUMAB
     Indication: Hidradenitis
     Dosage: DOSE FORM: SOLUTION FOR INJECTION IN PRE-FILLED PEN, CITRATE FREE
     Route: 058

REACTIONS (1)
  - Hidradenitis [Fatal]
